FAERS Safety Report 23853635 (Version 1)
Quarter: 2024Q2

REPORT INFORMATION
  Report Type: Spontaneous
  Country: US (occurrence: US)
  Receive Date: 20240514
  Receipt Date: 20240514
  Transmission Date: 20240716
  Serious: Yes (Other)
  Sender: FDA-Public Use
  Company Number: US-SA-SAC20240513000206

PATIENT
  Age: 59 Year
  Sex: Male

DRUGS (1)
  1. DUPIXENT [Suspect]
     Active Substance: DUPILUMAB
     Indication: Asthma
     Dosage: 300 MG, QOW
     Route: 058
     Dates: start: 2023

REACTIONS (9)
  - Bronchial oedema [Unknown]
  - Wheezing [Unknown]
  - Cough [Unknown]
  - Influenza [Unknown]
  - Tendon disorder [Unknown]
  - COVID-19 [Unknown]
  - Arthropathy [Unknown]
  - Oxygen saturation decreased [Recovered/Resolved]
  - Sinusitis [Unknown]

NARRATIVE: CASE EVENT DATE: 20230101
